FAERS Safety Report 6559517-6 (Version None)
Quarter: 2010Q1

REPORT INFORMATION
  Report Type: 
  Country: None (occurrence: None)
  Receive Date: 20100129
  Receipt Date: 20090902
  Transmission Date: 20100710
  Serious: No
  Sender: FDA-Public Use
  Company Number: US-ABBOTT-09P-163-0595590-00

PATIENT
  Sex: Female
  Weight: 72.64 kg

DRUGS (12)
  1. HUMIRA [Suspect]
     Indication: RHEUMATOID ARTHRITIS
     Route: 058
     Dates: start: 20090818
  2. GLUCOSAMINE [Concomitant]
     Indication: MEDICAL DIET
     Dosage: UNKNOWN
  3. CALCIUM WITH VITAMIN D [Concomitant]
     Indication: MINERAL SUPPLEMENTATION
  4. VITAMIN D [Concomitant]
     Indication: VITAMIN SUPPLEMENTATION
  5. SIMVASTATIN [Concomitant]
     Indication: BLOOD CHOLESTEROL INCREASED
  6. FOLIC ACID [Concomitant]
     Indication: VITAMIN SUPPLEMENTATION
  7. TRAMADOL [Concomitant]
     Indication: PAIN
  8. AMBIEN [Concomitant]
     Indication: SLEEP DISORDER THERAPY
  9. ABILIFY [Concomitant]
     Indication: DRUG USE FOR UNKNOWN INDICATION
  10. OMEPRAZOLE [Concomitant]
     Indication: ABDOMINAL DISCOMFORT
  11. PREDNISONE [Concomitant]
     Indication: DRUG USE FOR UNKNOWN INDICATION
  12. METHOTREXATE [Concomitant]
     Indication: RHEUMATOID ARTHRITIS

REACTIONS (1)
  - DRUG DOSE OMISSION [None]
